FAERS Safety Report 16535784 (Version 3)
Quarter: 2019Q3

REPORT INFORMATION
  Report Type: Spontaneous
  Country: DE (occurrence: DE)
  Receive Date: 20190705
  Receipt Date: 20190906
  Transmission Date: 20191004
  Serious: Yes (Congenital Anomaly)
  Sender: FDA-Public Use
  Company Number: DE-BIOGEN-2019BI00758814

PATIENT
  Sex: Male
  Weight: 2.68 kg

DRUGS (1)
  1. TECFIDERA [Suspect]
     Active Substance: DIMETHYL FUMARATE
     Indication: MATERNAL EXPOSURE TIMING UNSPECIFIED
     Route: 064
     Dates: start: 20140326, end: 20180418

REACTIONS (3)
  - Aberrant aortic arch [Not Recovered/Not Resolved]
  - Foetal exposure during pregnancy [Unknown]
  - Single umbilical artery [Recovered/Resolved]
